FAERS Safety Report 12821752 (Version 2)
Quarter: 2016Q4

REPORT INFORMATION
  Report Type: Spontaneous
  Country: US (occurrence: US)
  Receive Date: 20161006
  Receipt Date: 20161010
  Transmission Date: 20170207
  Serious: Yes (Hospitalization, Other)
  Sender: FDA-Public Use
  Company Number: US-CELGENEUS-USA-2016096943

PATIENT
  Age: 67 Year
  Sex: Male
  Weight: 83.99 kg

DRUGS (2)
  1. REVLIMID [Suspect]
     Active Substance: LENALIDOMIDE
     Indication: PLASMA CELL MYELOMA
     Route: 048
     Dates: start: 201511
  2. REVLIMID [Suspect]
     Active Substance: LENALIDOMIDE
     Route: 048
     Dates: start: 20160707

REACTIONS (7)
  - Visual field defect [Unknown]
  - Visual impairment [Unknown]
  - Head injury [Unknown]
  - Depression [Unknown]
  - Macular oedema [Unknown]
  - Optic nerve disorder [Unknown]
  - Fall [Unknown]

NARRATIVE: CASE EVENT DATE: 2016
